FAERS Safety Report 6268166-9 (Version None)
Quarter: 2009Q3

REPORT INFORMATION
  Report Type: 
  Country: None (occurrence: None)
  Receive Date: 20090713
  Receipt Date: 20090713
  Transmission Date: 20100115
  Serious: Yes (Other)
  Sender: FDA-Public Use
  Company Number: None

PATIENT
  Age: 40 Year
  Sex: Female
  Weight: 52.6173 kg

DRUGS (1)
  1. SERTRALINE [Suspect]
     Indication: DEPRESSION
     Dosage: 100 MG ONCE TAB DAILY
     Dates: start: 19970101

REACTIONS (4)
  - HEADACHE [None]
  - NAUSEA [None]
  - URTICARIA [None]
  - VOMITING [None]
